FAERS Safety Report 6843819-X (Version None)
Quarter: 2010Q3

REPORT INFORMATION
  Report Type: 
  Country: None (occurrence: None)
  Receive Date: 20100715
  Receipt Date: 20100701
  Transmission Date: 20110219
  Serious: Yes (Hospitalization)
  Sender: FDA-Public Use
  Company Number: PHEH2010US02712

PATIENT
  Sex: Female

DRUGS (7)
  1. EXJADE [Suspect]
     Indication: IRON OVERLOAD
     Dosage: 750 MG, QD
     Route: 048
  2. AMBIEN [Concomitant]
     Dosage: 5 MG, PRN
     Route: 048
  3. IBUPROFEN [Concomitant]
     Dosage: 800 MG, PRN
     Route: 048
  4. FOLIC ACID [Concomitant]
     Dosage: 1 MG, DAILY
     Route: 048
  5. OXYTOCIN [Concomitant]
     Dosage: 60 MG, UNK
     Route: 048
  6. OXYCODONE HCL [Concomitant]
     Dosage: 10 MG, PRN
  7. DEPO-PROVERA [Concomitant]
     Dosage: 50 MG, UNK
     Route: 030

REACTIONS (5)
  - CENTRAL VENOUS CATHETERISATION [None]
  - DEVICE RELATED INFECTION [None]
  - LIVER FUNCTION TEST ABNORMAL [None]
  - PAIN [None]
  - SICKLE CELL ANAEMIA [None]
